FAERS Safety Report 13554713 (Version 3)
Quarter: 2019Q2

REPORT INFORMATION
  Report Type: Spontaneous
  Country: US (occurrence: US)
  Receive Date: 20170517
  Receipt Date: 20190529
  Transmission Date: 20190711
  Serious: Yes (Other)
  Sender: FDA-Public Use
  Company Number: US-JNJFOC-20170509405

PATIENT
  Sex: Male

DRUGS (1)
  1. IBRUTINIB [Suspect]
     Active Substance: IBRUTINIB
     Indication: CHRONIC LYMPHOCYTIC LEUKAEMIA
     Route: 048

REACTIONS (8)
  - Vision blurred [Unknown]
  - Headache [Unknown]
  - Ocular hyperaemia [Unknown]
  - Visual impairment [Unknown]
  - Photophobia [Unknown]
  - Eye irritation [Unknown]
  - Conjunctival haemorrhage [Not Recovered/Not Resolved]
  - Lacrimation decreased [Unknown]
